FAERS Safety Report 10417039 (Version 1)
Quarter: 2014Q3

REPORT INFORMATION
  Report Type: Spontaneous
  Country: FR (occurrence: None)
  Receive Date: 20140826
  Receipt Date: 20140826
  Transmission Date: 20150326
  Serious: Yes (Hospitalization)
  Sender: FDA-Public Use
  Company Number: B1015495A

PATIENT
  Age: 80 Year
  Sex: Female
  Weight: 53.39 kg

DRUGS (6)
  1. PAROXETINE HYDROCHLORIDE. [Suspect]
     Active Substance: PAROXETINE HYDROCHLORIDE
     Indication: DEPRESSION
     Route: 048
     Dates: start: 20140703, end: 20140706
  2. MIANSERIN [Concomitant]
     Active Substance: MIANSERIN
  3. GABAPENTIN. [Concomitant]
     Active Substance: GABAPENTIN
  4. CARBAMAZEPINE. [Concomitant]
     Active Substance: CARBAMAZEPINE
  5. BISOPROLOL [Concomitant]
     Active Substance: BISOPROLOL
  6. LORAZEPAM. [Suspect]
     Active Substance: LORAZEPAM

REACTIONS (4)
  - Dizziness [None]
  - Confusional state [None]
  - Ataxia [None]
  - Gait disturbance [None]

NARRATIVE: CASE EVENT DATE: 20140706
